FAERS Safety Report 8186796-4 (Version None)
Quarter: 2012Q1

REPORT INFORMATION
  Report Type: 
  Country: None (occurrence: None)
  Receive Date: 20120306
  Receipt Date: 20120306
  Transmission Date: 20120608
  Serious: Yes (Other)
  Sender: FDA-Public Use
  Company Number: None

PATIENT
  Age: 64 Year
  Sex: Male
  Weight: 83.461 kg

DRUGS (1)
  1. TRIAMTERENE AND HYDROCHLOROTHIAZIDE [Suspect]
     Indication: HYPERTENSION
     Dosage: 1 TABLET
     Route: 048
     Dates: start: 20120202, end: 20120204

REACTIONS (13)
  - BURNING SENSATION [None]
  - PAIN IN EXTREMITY [None]
  - BACK PAIN [None]
  - BLADDER DYSFUNCTION [None]
  - HEADACHE [None]
  - ABDOMINAL PAIN [None]
  - BONE PAIN [None]
  - MYALGIA [None]
  - CHEST PAIN [None]
  - NOCTURIA [None]
  - MUSCLE SPASMS [None]
  - MUSCULOSKELETAL PAIN [None]
  - POLLAKIURIA [None]
